FAERS Safety Report 16521831 (Version 1)
Quarter: 2019Q3

REPORT INFORMATION
  Report Type: Spontaneous
  Country: US (occurrence: US)
  Receive Date: 20190702
  Receipt Date: 20190702
  Transmission Date: 20191004
  Serious: Yes (Hospitalization)
  Sender: FDA-Public Use
  Company Number: US-BAYER-2019-122358

PATIENT
  Sex: Female

DRUGS (1)
  1. ESTRADIOL. [Suspect]
     Active Substance: ESTRADIOL
     Route: 062

REACTIONS (10)
  - Myocardial infarction [None]
  - Product physical consistency issue [None]
  - Product formulation issue [None]
  - Product adhesion issue [None]
  - Blood pressure fluctuation [Not Recovered/Not Resolved]
  - Weight increased [None]
  - Heart rate irregular [Not Recovered/Not Resolved]
  - Palpitations [Not Recovered/Not Resolved]
  - Breast enlargement [None]
  - Chest discomfort [None]
